FAERS Safety Report 10602282 (Version 2)
Quarter: 2014Q4

REPORT INFORMATION
  Report Type: Spontaneous
  Country: JP (occurrence: None)
  Receive Date: 20141120
  Receipt Date: 20141205
  Transmission Date: 20150529
  Serious: Yes (Hospitalization)
  Sender: FDA-Public Use
  Company Number: JP-017734

PATIENT
  Sex: Male

DRUGS (3)
  1. HOKUNALIN [Concomitant]
     Active Substance: TULOBUTEROL
  2. DEGARELIX (GONAX) [Suspect]
     Active Substance: DEGARELIX
     Indication: PRODUCT USED FOR UNKNOWN INDICATION
     Dosage: 1X/4 WEEKS
     Route: 058
     Dates: start: 20141105
  3. THEOPHYLLINE [Concomitant]
     Active Substance: THEOPHYLLINE ANHYDROUS

REACTIONS (2)
  - Decreased appetite [None]
  - Pneumonia aspiration [None]

NARRATIVE: CASE EVENT DATE: 20141107
